FAERS Safety Report 7069103-X (Version None)
Quarter: 2010Q4

REPORT INFORMATION
  Report Type: 
  Country: None (occurrence: None)
  Receive Date: 20101028
  Receipt Date: 20101022
  Transmission Date: 20110411
  Serious: Yes (Hospitalization)
  Sender: FDA-Public Use
  Company Number: A0796933A

PATIENT
  Age: 58 Year
  Sex: Male
  Weight: 106 kg

DRUGS (4)
  1. AVANDIA [Suspect]
     Dosage: 4MG PER DAY
     Route: 048
     Dates: start: 20060101, end: 20070522
  2. GLUCOPHAGE [Concomitant]
     Dates: end: 20060101
  3. INSULIN [Concomitant]
  4. DIOVAN HCT [Concomitant]

REACTIONS (2)
  - CORONARY ARTERY DISEASE [None]
  - MYOCARDIAL INFARCTION [None]
